FAERS Safety Report 6596483-1 (Version None)
Quarter: 2010Q1

REPORT INFORMATION
  Report Type: 
  Country: None (occurrence: None)
  Receive Date: 20100223
  Receipt Date: 20100215
  Transmission Date: 20100710
  Serious: Yes (Hospitalization, Other)
  Sender: FDA-Public Use
  Company Number: US-AMGEN-QUU357059

PATIENT
  Sex: Female

DRUGS (2)
  1. ENBREL [Suspect]
     Indication: PSORIATIC ARTHROPATHY
     Route: 058
     Dates: start: 20070722
  2. ENBREL [Suspect]
     Indication: PSORIASIS

REACTIONS (7)
  - CERVIX CARCINOMA [None]
  - FURUNCLE [None]
  - INJECTION SITE PAIN [None]
  - OVARIAN CYST [None]
  - PSORIASIS [None]
  - UTERINE LEIOMYOMA [None]
  - VAGINAL HAEMORRHAGE [None]
